FAERS Safety Report 11167380 (Version 2)
Quarter: 2015Q4

REPORT INFORMATION
  Report Type: Spontaneous
  Country: None (occurrence: US)
  Receive Date: 20150603
  Receipt Date: 20151218
  Transmission Date: 20160304
  Serious: No
  Sender: FDA-Public Use
  Company Number: 2015-00049

PATIENT
  Age: 55 Year
  Sex: Female
  Weight: 77.27 kg

DRUGS (2)
  1. ZICAM COLD REMEDY LIQUI-LOZ [Suspect]
     Active Substance: ZINC ACETATE\ZINC GLUCONATE
     Route: 048
  2. ZICAM COLD REMEDY NASAL SPRAY [Suspect]
     Active Substance: HOMEOPATHICS
     Route: 045

REACTIONS (2)
  - Ageusia [Not Recovered/Not Resolved]
  - Anosmia [Not Recovered/Not Resolved]
